FAERS Safety Report 21600068 (Version 1)
Quarter: 2022Q4

REPORT INFORMATION
  Report Type: Spontaneous
  Country: US (occurrence: US)
  Receive Date: 20221116
  Receipt Date: 20221116
  Transmission Date: 20230113
  Serious: No
  Sender: FDA-Public Use
  Company Number: US-BEIGENE USA INC-BGN-2022-010871

PATIENT

DRUGS (1)
  1. BRUKINSA [Suspect]
     Active Substance: ZANUBRUTINIB
     Indication: Waldenstrom^s macroglobulinaemia
     Dosage: 2 CAPSULES MORNING AND EVENING

REACTIONS (1)
  - COVID-19 [Not Recovered/Not Resolved]

NARRATIVE: CASE EVENT DATE: 20221110
